FAERS Safety Report 21093502 (Version 2)
Quarter: 2022Q3

REPORT INFORMATION
  Report Type: Spontaneous
  Country: US (occurrence: US)
  Receive Date: 20220718
  Receipt Date: 20220916
  Transmission Date: 20221027
  Serious: No
  Sender: FDA-Public Use
  Company Number: US-GSK-US2022AMR106625

PATIENT
  Sex: Female

DRUGS (1)
  1. NUCALA [Suspect]
     Active Substance: MEPOLIZUMAB
     Indication: Product used for unknown indication
     Dosage: 100 MG, Z ( EVERY 4 WEEKS)

REACTIONS (3)
  - Lip swelling [Recovered/Resolved]
  - Condition aggravated [Recovered/Resolved]
  - Arthropathy [Unknown]
